FAERS Safety Report 12701215 (Version 1)
Quarter: 2016Q3

REPORT INFORMATION
  Report Type: Spontaneous
  Country: US (occurrence: None)
  Receive Date: 20160830
  Receipt Date: 20160830
  Transmission Date: 20161109
  Serious: Yes (Hospitalization, Other)
  Sender: FDA-Public Use
  Company Number: None

PATIENT
  Age: 82 Year
  Sex: Female
  Weight: 58.97 kg

DRUGS (11)
  1. FUROSEMIDE. [Concomitant]
     Active Substance: FUROSEMIDE
  2. IRON [Concomitant]
     Active Substance: IRON
  3. VITAMIN D [Concomitant]
     Active Substance: CHOLECALCIFEROL
  4. AMOX/CLAV [Suspect]
     Active Substance: AMOXICILLIN\CLAVULANATE POTASSIUM
  5. MULTIVIT [Concomitant]
     Active Substance: VITAMINS
  6. VITAMIN C [Concomitant]
     Active Substance: ASCORBIC ACID
  7. LEVOFLOVXACIN [Suspect]
     Active Substance: LEVOFLOXACIN
  8. ALPRAZOLAM. [Concomitant]
     Active Substance: ALPRAZOLAM
  9. METRONIDAZOLE. [Suspect]
     Active Substance: METRONIDAZOLE
  10. PENTOXIFYLLINE. [Concomitant]
     Active Substance: PENTOXIFYLLINE
  11. VIT B [Concomitant]
     Active Substance: VITAMIN B

REACTIONS (18)
  - Dysphonia [None]
  - Malaise [None]
  - Eye disorder [None]
  - Feeling abnormal [None]
  - Angina pectoris [None]
  - Balance disorder [None]
  - Cough [None]
  - Condition aggravated [None]
  - Vomiting [None]
  - Wheezing [None]
  - Diarrhoea haemorrhagic [None]
  - Dyspnoea [None]
  - Decreased appetite [None]
  - Insomnia [None]
  - Rash [None]
  - Pruritus [None]
  - Fatigue [None]
  - Arteriovenous malformation [None]

NARRATIVE: CASE EVENT DATE: 20160616
